FAERS Safety Report 11842641 (Version 2)
Quarter: 2015Q4

REPORT INFORMATION
  Report Type: Spontaneous
  Country: US (occurrence: US)
  Receive Date: 20151216
  Receipt Date: 20151223
  Transmission Date: 20160305
  Serious: Yes (Hospitalization)
  Sender: FDA-Public Use
  Company Number: PHHY2015US163514

PATIENT
  Age: 39 Year
  Sex: Female

DRUGS (7)
  1. TACROLIMUS. [Suspect]
     Active Substance: TACROLIMUS
     Indication: IMMUNOSUPPRESSION
  2. AZITHROMYCIN [Concomitant]
     Active Substance: AZITHROMYCIN ANHYDROUS
     Indication: BRONCHITIS
     Route: 065
  3. PREDNISONE. [Suspect]
     Active Substance: PREDNISONE
     Indication: RENAL TRANSPLANT
     Route: 065
  4. MYCOPHENOLIC ACID. [Suspect]
     Active Substance: MYCOPHENOLIC ACID
     Indication: IMMUNOSUPPRESSION
  5. MYCOPHENOLIC ACID. [Suspect]
     Active Substance: MYCOPHENOLIC ACID
     Indication: RENAL TRANSPLANT
     Route: 065
  6. TACROLIMUS. [Suspect]
     Active Substance: TACROLIMUS
     Indication: RENAL TRANSPLANT
     Route: 065
  7. PREDNISONE. [Suspect]
     Active Substance: PREDNISONE
     Indication: IMMUNOSUPPRESSION

REACTIONS (18)
  - Meningitis bacterial [Recovered/Resolved]
  - CNS ventriculitis [Recovered/Resolved]
  - Headache [Unknown]
  - Nystagmus [Unknown]
  - Creatinine renal clearance abnormal [Unknown]
  - Dizziness [Unknown]
  - Pyrexia [Unknown]
  - Leukopenia [Unknown]
  - Neck pain [Unknown]
  - Gait disturbance [Unknown]
  - Hyperreflexia [Unknown]
  - Hyponatraemia [Unknown]
  - White matter lesion [Recovered/Resolved]
  - Nausea [Unknown]
  - Memory impairment [Recovering/Resolving]
  - Meningism [Unknown]
  - Deafness [Unknown]
  - Extensor plantar response [Unknown]
